FAERS Safety Report 5864074-3 (Version None)
Quarter: 2008Q3

REPORT INFORMATION
  Report Type: 
  Country: None (occurrence: None)
  Receive Date: 20080829
  Receipt Date: 20080822
  Transmission Date: 20090109
  Serious: Yes (Other)
  Sender: FDA-Public Use
  Company Number: AT-BAYER-200824885GPV

PATIENT
  Age: 24 Year
  Sex: Female

DRUGS (1)
  1. ULTRAVIST 300 [Suspect]
     Dosage: AS USED: 90 ML
     Dates: start: 20080807, end: 20080807

REACTIONS (2)
  - EYE PRURITUS [None]
  - RASH PUSTULAR [None]
